FAERS Safety Report 14333444 (Version 1)
Quarter: 2017Q4

REPORT INFORMATION
  Report Type: Spontaneous
  Country: US (occurrence: US)
  Receive Date: 20171228
  Receipt Date: 20171228
  Transmission Date: 20180321
  Serious: Yes (Other)
  Sender: FDA-Public Use
  Company Number: US-PERRIGO-17US031696

PATIENT
  Age: 37 Year
  Sex: Male
  Weight: 79.37 kg

DRUGS (3)
  1. OXYMETAZOLINE HYDROCHLORIDE. [Suspect]
     Active Substance: OXYMETAZOLINE HYDROCHLORIDE
     Indication: NASAL CONGESTION
     Dosage: 2 SPRAYS IN EACH NOSTRIL, SINGLE
     Route: 045
     Dates: start: 20171210, end: 20171210
  2. IBUPROFEN. [Concomitant]
     Active Substance: IBUPROFEN
     Indication: PAIN
  3. IBUPROFEN. [Concomitant]
     Active Substance: IBUPROFEN
     Indication: PYREXIA
     Dosage: UNKNOWN, PRN
     Route: 048

REACTIONS (6)
  - Expired product administered [Recovered/Resolved]
  - Anosmia [Recovering/Resolving]
  - Visual impairment [Recovered/Resolved]
  - Sinusitis [Recovering/Resolving]
  - Ageusia [Recovering/Resolving]
  - Nasal discomfort [Recovering/Resolving]

NARRATIVE: CASE EVENT DATE: 20171210
